FAERS Safety Report 6538011-2 (Version None)
Quarter: 2010Q1

REPORT INFORMATION
  Report Type: 
  Country: None (occurrence: None)
  Receive Date: 20100112
  Receipt Date: 20100112
  Transmission Date: 20100710
  Serious: Yes (Other)
  Sender: FDA-Public Use
  Company Number: None

PATIENT
  Age: 72 Year
  Sex: Female
  Weight: 68.0396 kg

DRUGS (1)
  1. ALENDRONATE 70MG PILLS [Suspect]
     Dosage: PO
     Route: 048

REACTIONS (3)
  - DYSPNOEA [None]
  - FOOT DEFORMITY [None]
  - MUSCLE SPASMS [None]
